FAERS Safety Report 6626518-9 (Version None)
Quarter: 2010Q1

REPORT INFORMATION
  Report Type: 
  Country: None (occurrence: None)
  Receive Date: 20100310
  Receipt Date: 20100224
  Transmission Date: 20100710
  Serious: Yes (Hospitalization)
  Sender: FDA-Public Use
  Company Number: US-ELI_LILLY_AND_COMPANY-US200910007475

PATIENT
  Age: 72 Year
  Sex: Female
  Weight: 90.249 kg

DRUGS (6)
  1. FORTEO [Suspect]
     Dates: start: 20090101
  2. PLAVIX [Concomitant]
     Dosage: UNK, UNKNOWN
  3. PRILOSEC [Concomitant]
     Dosage: UNK, UNKNOWN
  4. SIMVASTATIN [Concomitant]
     Dosage: UNK, UNKNOWN
  5. MICARDIS [Concomitant]
     Dosage: UNK, UNKNOWN
  6. HYDROCODONE [Concomitant]
     Dosage: UNK, UNKNOWN

REACTIONS (2)
  - PERIPHERAL ARTERIAL OCCLUSIVE DISEASE [None]
  - PERIPHERAL ISCHAEMIA [None]
